FAERS Safety Report 12123512 (Version 1)
Quarter: 2016Q1

REPORT INFORMATION
  Report Type: Spontaneous
  Country: US (occurrence: None)
  Receive Date: 20160226
  Receipt Date: 20160226
  Transmission Date: 20160526
  Serious: No
  Sender: FDA-Public Use
  Company Number: None

PATIENT
  Age: 36 Year
  Sex: Female
  Weight: 98.88 kg

DRUGS (1)
  1. TOBRAMYCIN SULFATE80 MG/2ML INJECTION [Suspect]
     Active Substance: TOBRAMYCIN SULFATE
     Indication: DRUG THERAPY
     Dosage: INJECTION 80/2ML, ONCE, INTO THE MUSCLE
     Dates: start: 20160223, end: 20160223

REACTIONS (5)
  - Lip swelling [None]
  - Lip blister [None]
  - Pruritus [None]
  - Burning sensation [None]
  - Urticaria [None]

NARRATIVE: CASE EVENT DATE: 20160223
